FAERS Safety Report 9779604 (Version 1)
Quarter: 2013Q4

REPORT INFORMATION
  Report Type: Spontaneous
  Country: US (occurrence: US)
  Receive Date: 20131223
  Receipt Date: 20131223
  Transmission Date: 20140711
  Serious: No
  Sender: FDA-Public Use
  Company Number: US-PFIZER INC-2013362997

PATIENT
  Age: 51 Year
  Sex: Female

DRUGS (4)
  1. PREMPRO [Suspect]
     Indication: HOT FLUSH
     Dosage: 0.3/1.5 MG, 1X/DAY
     Route: 048
     Dates: start: 20131010
  2. NORVASC [Concomitant]
     Indication: HYPERTENSION
     Dosage: UNK
  3. MAXZIDE [Concomitant]
     Indication: HYPERTENSION
     Dosage: UNK
  4. METFORMIN [Concomitant]
     Indication: DIABETES MELLITUS
     Dosage: UNK

REACTIONS (1)
  - Hair colour changes [Unknown]
